FAERS Safety Report 4309819-9 (Version None)
Quarter: 2004Q1

REPORT INFORMATION
  Report Type: 
  Country: None (occurrence: None)
  Receive Date: 20040301
  Receipt Date: 20031110
  Transmission Date: 20041129
  Serious: Yes (Hospitalization)
  Sender: FDA-Public Use
  Company Number: 1463

PATIENT
  Age: 75 Year
  Sex: Male

DRUGS (12)
  1. TARGRETIN [Suspect]
     Indication: MYCOSIS FUNGOIDES
     Dosage: 300 MG QD PO
     Route: 048
     Dates: end: 20030801
  2. TARGRETIN [Suspect]
     Indication: MYCOSIS FUNGOIDES
     Dosage: 375 MG QD PO
     Route: 048
     Dates: start: 20031020, end: 20031101
  3. ASPIRIN [Concomitant]
  4. DOXEPIN HCL [Concomitant]
  5. EPOETIN ALFA [Concomitant]
  6. FEXOFENADINE HC1 [Concomitant]
  7. GLIPIZIDE [Concomitant]
  8. INSULIN [Concomitant]
  9. IRBESARTAN [Concomitant]
  10. METOPROLOL TARTRATE [Concomitant]
  11. PENTOXIFYLLINE [Concomitant]
  12. RANITIDINE [Concomitant]

REACTIONS (2)
  - HYPOTHYROIDISM [None]
  - RIGHT VENTRICULAR FAILURE [None]
